FAERS Safety Report 9246892 (Version 2)
Quarter: 2013Q2

REPORT INFORMATION
  Report Type: Spontaneous
  Country: JP (occurrence: JP)
  Receive Date: 20130422
  Receipt Date: 20130605
  Transmission Date: 20140414
  Serious: Yes (Hospitalization)
  Sender: FDA-Public Use
  Company Number: JP-GLAXOSMITHKLINE-B0883306A

PATIENT
  Age: 53 Year
  Sex: Female

DRUGS (8)
  1. PAXIL [Suspect]
     Indication: PANIC DISORDER
     Dosage: 5MG PER DAY
     Route: 048
     Dates: start: 2010
  2. PAXIL [Suspect]
     Indication: PANIC DISORDER
     Dosage: 100MG PER DAY
     Route: 048
     Dates: end: 201301
  3. PAXIL [Suspect]
     Indication: PANIC DISORDER
     Dosage: 10MG PER DAY
     Route: 048
     Dates: start: 201301, end: 201302
  4. PAXIL [Suspect]
     Indication: PANIC DISORDER
     Dosage: 5MG PER DAY
     Route: 048
     Dates: start: 201302, end: 20130409
  5. XYZAL [Suspect]
     Indication: SEASONAL ALLERGY
     Dosage: 5MG PER DAY
     Route: 048
     Dates: start: 20130318, end: 20130409
  6. MICARDIS [Concomitant]
     Indication: HYPERTENSION
     Dosage: 40MG PER DAY
     Route: 048
     Dates: start: 20130316, end: 20130409
  7. REBAMIPIDE [Concomitant]
     Indication: RIB FRACTURE
     Dosage: 80MG TWICE PER DAY
     Route: 048
     Dates: start: 20130318, end: 20130409
  8. ZALTOPROFEN [Concomitant]
     Indication: RIB FRACTURE
     Dosage: 100MG TWICE PER DAY
     Route: 048
     Dates: start: 20130318, end: 20130409

REACTIONS (11)
  - Ventricular tachycardia [Recovered/Resolved]
  - Ventricular fibrillation [Recovered/Resolved]
  - Electrocardiogram QT prolonged [Recovering/Resolving]
  - Rib fracture [Unknown]
  - Syncope [Recovering/Resolving]
  - Hypertension [Unknown]
  - Decreased appetite [Unknown]
  - Alcohol abuse [Unknown]
  - Hypophagia [Unknown]
  - Hepatic function abnormal [Unknown]
  - Palpitations [Unknown]
